FAERS Safety Report 15304211 (Version 1)
Quarter: 2018Q3

REPORT INFORMATION
  Report Type: Spontaneous
  Country: US (occurrence: US)
  Receive Date: 20180809
  Receipt Date: 20180809
  Transmission Date: 20181010
  Serious: Yes (Other)
  Sender: FDA-Public Use
  Company Number: None

PATIENT
  Sex: Male
  Weight: 99 kg

DRUGS (35)
  1. BD NEEDLES?RED [Concomitant]
  2. BYETTA [Concomitant]
     Active Substance: EXENATIDE
  3. ZOLPIDEM?AMBIEN [Concomitant]
  4. DONEPEZIL. [Concomitant]
     Active Substance: DONEPEZIL
  5. FLOMAX [Concomitant]
     Active Substance: TAMSULOSIN HYDROCHLORIDE
  6. VESICARE [Concomitant]
     Active Substance: SOLIFENACIN SUCCINATE
  7. PURE BAKING SODA [Concomitant]
     Active Substance: SODIUM BICARBONATE
  8. NOVOLOG [Suspect]
     Active Substance: INSULIN ASPART
     Indication: DIABETES MELLITUS
     Dosage: ?          QUANTITY:25 INJECTION(S);?
     Route: 058
     Dates: start: 20180702
  9. CLARITIN [Concomitant]
     Active Substance: LORATADINE
  10. INSULIN ? TRESIBA [Concomitant]
  11. LORATADINE. [Concomitant]
     Active Substance: LORATADINE
  12. O T LANCETS [Concomitant]
  13. BENADRYL [Concomitant]
     Active Substance: DIPHENHYDRAMINE HYDROCHLORIDE
  14. ELMIRON [Concomitant]
     Active Substance: PENTOSAN POLYSULFATE SODIUM
  15. NOVOLOG [Concomitant]
     Active Substance: INSULIN ASPART
  16. NORCO [Concomitant]
     Active Substance: ACETAMINOPHEN\HYDROCODONE BITARTRATE
  17. O T ULTRA STRIPS [Concomitant]
  18. PRAVASTATIN. [Concomitant]
     Active Substance: PRAVASTATIN
  19. BACLOFEN. [Concomitant]
     Active Substance: BACLOFEN
  20. OXYBUTYNIN. [Concomitant]
     Active Substance: OXYBUTYNIN CHLORIDE
  21. O T TEST SOLUTION [Concomitant]
  22. OXYCODONE [Concomitant]
     Active Substance: OXYCODONE
  23. BUPROPION. [Concomitant]
     Active Substance: BUPROPION
  24. ASPIRIN 81 MG [Concomitant]
     Active Substance: ASPIRIN
  25. FERROUS SO4 [Concomitant]
  26. TESTOSTERONE. [Concomitant]
     Active Substance: TESTOSTERONE
  27. VITAMIN D3 [Concomitant]
     Active Substance: CHOLECALCIFEROL
  28. FLAX SEED [Concomitant]
     Active Substance: FLAX SEED
  29. BD NEEDLES?BLUE [Concomitant]
  30. BD NEEDLES?PURPLE [Concomitant]
  31. LAMOTRIGINE. [Concomitant]
     Active Substance: LAMOTRIGINE
  32. NASONEX [Concomitant]
     Active Substance: MOMETASONE FUROATE
  33. PSEUDOEPHEDRINE [Concomitant]
     Active Substance: PSEUDOEPHEDRINE
  34. VENTALIN [Concomitant]
  35. COQ10 [Concomitant]
     Active Substance: UBIDECARENONE

REACTIONS (3)
  - Blood glucose increased [None]
  - Suspected counterfeit product [None]
  - Drug ineffective [None]
